FAERS Safety Report 6418272-0 (Version None)
Quarter: 2009Q4

REPORT INFORMATION
  Report Type: 
  Country: None (occurrence: None)
  Receive Date: 20091021
  Receipt Date: 20090615
  Transmission Date: 20100525
  Serious: No
  Sender: FDA-Public Use
  Company Number: ALL1-2009-01628

PATIENT
  Age: 24 Year
  Sex: Female
  Weight: 39.5 kg

DRUGS (2)
  1. VYVANSE [Suspect]
     Indication: ATTENTION DEFICIT/HYPERACTIVITY DISORDER
     Dosage: 70 MG, 1X/DAY:QD, ORAL
     Route: 048
     Dates: start: 20080501
  2. XANAX XR (ALPRAZOLAM) TABLET [Concomitant]

REACTIONS (2)
  - BIPOLAR DISORDER [None]
  - DRUG INEFFECTIVE [None]
